FAERS Safety Report 12316910 (Version 1)
Quarter: 2016Q2

REPORT INFORMATION
  Report Type: Spontaneous
  Country: US (occurrence: None)
  Receive Date: 20160428
  Receipt Date: 20160428
  Transmission Date: 20160815
  Serious: Yes (Other)
  Sender: FDA-Public Use
  Company Number: None

PATIENT
  Age: 60 Year
  Sex: Male
  Weight: 98 kg

DRUGS (3)
  1. OPTIRAY350 [Concomitant]
  2. VANCOMYCIN [Suspect]
     Active Substance: VANCOMYCIN
     Indication: CELLULITIS ORBITAL
     Dosage: (NOT OTHERWISE SPECIFIED)
     Route: 042
     Dates: start: 20160218, end: 20160225
  3. LISINOPRIL. [Concomitant]
     Active Substance: LISINOPRIL

REACTIONS (6)
  - Vomiting [None]
  - Dehydration [None]
  - Diarrhoea [None]
  - Acute kidney injury [None]
  - Nausea [None]
  - Asthenia [None]

NARRATIVE: CASE EVENT DATE: 20160229
